FAERS Safety Report 10039319 (Version 1)
Quarter: 2014Q1

REPORT INFORMATION
  Report Type: Spontaneous
  Country: US (occurrence: US)
  Receive Date: 20140326
  Receipt Date: 20140326
  Transmission Date: 20141002
  Serious: No
  Sender: FDA-Public Use
  Company Number: US-B.I. PHARMACEUTICALS,INC./RIDGEFIELD-2014-BI-12269BP

PATIENT
  Age: 81 Year
  Sex: Male

DRUGS (2)
  1. PRADAXA [Suspect]
     Indication: THROMBOSIS PROPHYLAXIS
     Dosage: 150 MG
     Route: 048
     Dates: start: 2012
  2. PRADAXA [Suspect]
     Indication: ARRHYTHMIA PROPHYLAXIS

REACTIONS (2)
  - Aortic aneurysm [Not Recovered/Not Resolved]
  - Renal impairment [Not Recovered/Not Resolved]
